FAERS Safety Report 8947189 (Version 1)
Quarter: 2012Q4

REPORT INFORMATION
  Report Type: Report from Study
  Country: DZ (occurrence: DZ)
  Receive Date: 20121205
  Receipt Date: 20121205
  Transmission Date: 20130627
  Serious: Yes (Other)
  Sender: FDA-Public Use
  Company Number: DZ-ROCHE-1163873

PATIENT
  Age: 56 Year

DRUGS (5)
  1. RITUXIMAB [Suspect]
     Indication: HODGKIN^S DISEASE
     Route: 065
  2. CYCLOPHOSPHAMIDE [Concomitant]
     Indication: HODGKIN^S DISEASE
  3. ADRIAMYCIN [Concomitant]
     Indication: HODGKIN^S DISEASE
  4. ONCOVIN [Concomitant]
     Indication: HODGKIN^S DISEASE
  5. PREDNISONE [Concomitant]
     Indication: HODGKIN^S DISEASE

REACTIONS (3)
  - Decubitus ulcer [Not Recovered/Not Resolved]
  - Nausea [Unknown]
  - Constipation [Unknown]
